FAERS Safety Report 8806335 (Version 1)
Quarter: 2012Q4

REPORT INFORMATION
  Report Type: 
  Country: US (occurrence: US)
  Receive Date: 20120925
  Receipt Date: 20120925
  Transmission Date: 20130627
  Serious: Yes (Hospitalization, Other)
  Sender: FDA-Public Use
  Company Number: US-ASTELLAS-2012US007926

PATIENT
  Sex: Female
  Weight: 57 kg

DRUGS (2)
  1. VESICARE [Suspect]
     Indication: HYPERTONIC BLADDER
     Dosage: 10 mg, UID/QD
     Route: 048
     Dates: end: 2011
  2. VESICARE [Suspect]
     Dosage: 10 mg, bid
     Route: 048
     Dates: start: 2011

REACTIONS (6)
  - Drug ineffective [Unknown]
  - Prescribed overdose [Unknown]
  - Cervical vertebral fracture [Unknown]
  - Loss of consciousness [Unknown]
  - Enuresis [Unknown]
  - Vaginal infection [Unknown]
